FAERS Safety Report 18407771 (Version 1)
Quarter: 2020Q4

REPORT INFORMATION
  Report Type: Spontaneous
  Country: ES (occurrence: ES)
  Receive Date: 20201020
  Receipt Date: 20201020
  Transmission Date: 20210114
  Serious: Yes (Other)
  Sender: FDA-Public Use
  Company Number: ES-COLLEGIUM PHARMACEUTICAL, INC.-2020CGM00319

PATIENT
  Age: 40 Year
  Sex: Male

DRUGS (14)
  1. LORAZEPAM. [Suspect]
     Active Substance: LORAZEPAM
     Route: 065
  2. ALCOHOL. [Suspect]
     Active Substance: ALCOHOL
     Route: 065
  3. BUPRENORPHINE. [Suspect]
     Active Substance: BUPRENORPHINE
     Route: 065
  4. ALPRAZOLAM. [Suspect]
     Active Substance: ALPRAZOLAM
     Route: 065
  5. LORMETAZEPAM [Suspect]
     Active Substance: LORMETAZEPAM
     Route: 065
  6. NORDAZEPAM [Suspect]
     Active Substance: NORDAZEPAM
     Dosage: UNK
     Route: 065
  7. COCAINE [Suspect]
     Active Substance: COCAINE
  8. DIAZEPAM. [Suspect]
     Active Substance: DIAZEPAM
  9. OXAZEPAM. [Suspect]
     Active Substance: OXAZEPAM
     Route: 065
  10. PARACETAMOL [Suspect]
     Active Substance: ACETAMINOPHEN
     Route: 065
  11. TAPENTADOL [Suspect]
     Active Substance: TAPENTADOL
     Indication: ANKYLOSING SPONDYLITIS
     Dosage: 250 MG, EVERY 12 HOURS
     Route: 065
  12. PREGABALIN. [Suspect]
     Active Substance: PREGABALIN
     Route: 065
  13. TRAMADOL. [Suspect]
     Active Substance: TRAMADOL
     Route: 065
  14. METHADONE [Suspect]
     Active Substance: METHADONE HYDROCHLORIDE
     Route: 065

REACTIONS (6)
  - Pain [Unknown]
  - Drug screen positive [Unknown]
  - Disturbance in social behaviour [Unknown]
  - Hallucination, visual [Unknown]
  - Sleep disorder [Unknown]
  - Headache [Unknown]
